FAERS Safety Report 5564345-4 (Version None)
Quarter: 2007Q4

REPORT INFORMATION
  Report Type: 
  Country: None (occurrence: None)
  Receive Date: 20071218
  Receipt Date: 20071211
  Transmission Date: 20080405
  Serious: Yes (Hospitalization, Other)
  Sender: FDA-Public Use
  Company Number: PHBS2007JP18466

PATIENT
  Age: 2 Year
  Sex: Female
  Weight: 16 kg

DRUGS (4)
  1. TEGRETOL [Suspect]
     Indication: CONVULSION
     Dosage: 60 MG/D
     Route: 048
     Dates: start: 20071013, end: 20071018
  2. SOLITA-T1 INJECTION [Concomitant]
     Dosage: 1000 ML/D
     Route: 042
     Dates: start: 20071013, end: 20071014
  3. BIO THREE [Concomitant]
     Dosage: 1.2 MG/D
     Route: 048
     Dates: start: 20071013, end: 20071020
  4. WAKOBITAL [Suspect]
     Dosage: 100 MG/D
     Route: 054
     Dates: start: 20071013, end: 20071013

REACTIONS (5)
  - ARTHRALGIA [None]
  - BEDRIDDEN [None]
  - DRUG LEVEL INCREASED [None]
  - GAIT DISTURBANCE [None]
  - SOMNOLENCE [None]
